FAERS Safety Report 4694466-X (Version None)
Quarter: 2005Q2

REPORT INFORMATION
  Report Type: 
  Country: None (occurrence: None)
  Receive Date: 20050620
  Receipt Date: 20050317
  Transmission Date: 20051028
  Serious: Yes (Death, Life-Threatening)
  Sender: FDA-Public Use
  Company Number: JP-ROCHE-399232

PATIENT
  Age: 7 Year
  Sex: Male

DRUGS (18)
  1. MYCOPHENOLATE MOFETIL [Suspect]
     Indication: GRAFT VERSUS HOST DISEASE
     Route: 048
     Dates: start: 20030612, end: 20030615
  2. MYCOPHENOLATE MOFETIL [Suspect]
     Route: 048
     Dates: start: 20030616, end: 20030619
  3. MYCOPHENOLATE MOFETIL [Suspect]
     Route: 048
     Dates: start: 20030620, end: 20030627
  4. BAKTAR [Concomitant]
     Route: 048
     Dates: start: 20021211, end: 20030703
  5. URSODIOL [Concomitant]
     Route: 048
     Dates: start: 20030428, end: 20030703
  6. ZOVIRAX [Concomitant]
     Route: 048
     Dates: start: 20030428, end: 20030703
  7. IMMUNE GLOBULIN INTRAVENOUS (HUMAN) [Concomitant]
     Route: 041
     Dates: start: 20030506, end: 20030701
  8. NEO MINOPHAGEN AT [Concomitant]
     Route: 042
     Dates: start: 20030524, end: 20030704
  9. SOLU-MEDROL [Concomitant]
     Route: 041
     Dates: start: 20030606, end: 20030704
  10. TARGOCID [Concomitant]
     Route: 041
     Dates: start: 20030607, end: 20030623
  11. MEROPENEM [Concomitant]
     Route: 041
     Dates: start: 20030607, end: 20030704
  12. DIFLUCAN [Concomitant]
     Route: 041
     Dates: start: 20030607, end: 20030618
  13. GASTER [Concomitant]
     Route: 042
     Dates: start: 20030609, end: 20030629
  14. FUNGUARD [Concomitant]
     Route: 041
     Dates: start: 20030627, end: 20030704
  15. GRAN [Concomitant]
     Route: 041
     Dates: start: 20030628, end: 20030703
  16. OMEPRAL [Concomitant]
     Route: 042
     Dates: start: 20030629, end: 20030704
  17. FOY [Concomitant]
     Route: 041
     Dates: start: 20030630, end: 20030704
  18. ANTHROBIN [Concomitant]
     Dosage: UNITS REPORTED AS ^UT^
     Route: 041
     Dates: start: 20030701, end: 20030703

REACTIONS (4)
  - DIARRHOEA [None]
  - LIVER DISORDER [None]
  - PANCYTOPENIA [None]
  - PNEUMONIA [None]
